FAERS Safety Report 22719035 (Version 6)
Quarter: 2024Q3

REPORT INFORMATION
  Report Type: Spontaneous
  Country: US (occurrence: US)
  Receive Date: 20230718
  Receipt Date: 20240802
  Transmission Date: 20241017
  Serious: Yes (Disabling, Other)
  Sender: ELI LILLY AND CO
  Company Number: US-ELI_LILLY_AND_COMPANY-US202307004087

PATIENT
  Age: 90 Year

DRUGS (1)
  1. BEBTELOVIMAB [Suspect]
     Active Substance: BEBTELOVIMAB
     Indication: COVID-19
     Dosage: 175 MG, SINGLE
     Route: 042
     Dates: start: 20220717, end: 20220717

REACTIONS (39)
  - Atrial fibrillation [Not Recovered/Not Resolved]
  - Atrial fibrillation [Not Recovered/Not Resolved]
  - Angina pectoris [Not Recovered/Not Resolved]
  - Deafness [Not Recovered/Not Resolved]
  - Cardiac disorder [Unknown]
  - Cardiac failure [Unknown]
  - Myocardial injury [Unknown]
  - Blood pressure diastolic decreased [Recovered/Resolved]
  - Blood pressure fluctuation [Unknown]
  - Musculoskeletal discomfort [Not Recovered/Not Resolved]
  - Movement disorder [Not Recovered/Not Resolved]
  - Swelling of eyelid [Not Recovered/Not Resolved]
  - Back pain [Not Recovered/Not Resolved]
  - Dizziness [Not Recovered/Not Resolved]
  - Eye disorder [Not Recovered/Not Resolved]
  - Chest discomfort [Not Recovered/Not Resolved]
  - Cough [Not Recovered/Not Resolved]
  - Headache [Not Recovered/Not Resolved]
  - Fatigue [Not Recovered/Not Resolved]
  - Hypoacusis [Not Recovered/Not Resolved]
  - Chest pain [Not Recovered/Not Resolved]
  - Depressed mood [Unknown]
  - Ear congestion [Not Recovered/Not Resolved]
  - Cerebral disorder [Not Recovered/Not Resolved]
  - Insomnia [Not Recovered/Not Resolved]
  - Emotional disorder [Unknown]
  - Emphysema [Not Recovered/Not Resolved]
  - Cardiac valve disease [Unknown]
  - Vital functions abnormal [Unknown]
  - Electric shock sensation [Unknown]
  - Pain in extremity [Unknown]
  - Spinal pain [Unknown]
  - Gait disturbance [Unknown]
  - Thirst [Unknown]
  - Pruritus [Not Recovered/Not Resolved]
  - Balance disorder [Unknown]
  - Muscle spasms [Unknown]
  - Myalgia [Unknown]
  - Post-acute COVID-19 syndrome [Unknown]

NARRATIVE: CASE EVENT DATE: 20220717
